FAERS Safety Report 26092336 (Version 1)
Quarter: 2025Q4

REPORT INFORMATION
  Report Type: Spontaneous
  Country: EU (occurrence: EU)
  Receive Date: 20251126
  Receipt Date: 20251126
  Transmission Date: 20260118
  Serious: Yes (Life-Threatening, Hospitalization, Other)
  Sender: MYLAN
  Company Number: EU-Accord-511295

PATIENT
  Age: 67 Year
  Sex: Female

DRUGS (16)
  1. METHOTREXATE [Suspect]
     Active Substance: METHOTREXATE
     Indication: Psoriatic arthropathy
     Dosage: UNK
  2. METHOTREXATE [Suspect]
     Active Substance: METHOTREXATE
     Dosage: UNK
     Route: 065
  3. METHOTREXATE [Suspect]
     Active Substance: METHOTREXATE
     Dosage: UNK
     Route: 065
  4. METHOTREXATE [Suspect]
     Active Substance: METHOTREXATE
     Dosage: UNK
  5. OLANZAPINE [Suspect]
     Active Substance: OLANZAPINE
     Indication: Bipolar disorder
     Dosage: UNK
  6. OLANZAPINE [Suspect]
     Active Substance: OLANZAPINE
     Dosage: UNK
     Route: 065
  7. OLANZAPINE [Suspect]
     Active Substance: OLANZAPINE
     Dosage: UNK
     Route: 065
  8. OLANZAPINE [Suspect]
     Active Substance: OLANZAPINE
     Dosage: UNK
  9. CLOTHIAPINE [Suspect]
     Active Substance: CLOTHIAPINE
     Indication: Bipolar disorder
     Dosage: UNK
  10. CLOTHIAPINE [Suspect]
     Active Substance: CLOTHIAPINE
     Dosage: UNK
     Route: 065
  11. CLOTHIAPINE [Suspect]
     Active Substance: CLOTHIAPINE
     Dosage: UNK
     Route: 065
  12. CLOTHIAPINE [Suspect]
     Active Substance: CLOTHIAPINE
     Dosage: UNK
  13. VALPROIC ACID [Suspect]
     Active Substance: VALPROIC ACID
     Indication: Bipolar disorder
     Dosage: UNK
  14. VALPROIC ACID [Suspect]
     Active Substance: VALPROIC ACID
     Dosage: UNK
     Route: 065
  15. VALPROIC ACID [Suspect]
     Active Substance: VALPROIC ACID
     Dosage: UNK
     Route: 065
  16. VALPROIC ACID [Suspect]
     Active Substance: VALPROIC ACID
     Dosage: UNK

REACTIONS (4)
  - Sepsis [Recovered/Resolved]
  - Acute leukaemia [Recovered/Resolved]
  - Pancytopenia [Recovered/Resolved]
  - Hypotension [Recovered/Resolved]
